FAERS Safety Report 7954114-X (Version None)
Quarter: 2011Q4

REPORT INFORMATION
  Report Type: 
  Country: None (occurrence: None)
  Receive Date: 20111129
  Receipt Date: 20111114
  Transmission Date: 20120403
  Serious: Yes (Life-Threatening, Other)
  Sender: FDA-Public Use
  Company Number: 2011SGN00291

PATIENT
  Age: 38 Year
  Sex: Female
  Weight: 57.6 kg

DRUGS (7)
  1. ADCETRIS [Suspect]
     Indication: ANAPLASTIC LARGE CELL LYMPHOMA T- AND NULL-CELL TYPES STAGE IV
     Dosage: 1.8 MG/KG, Q21D
     Dates: start: 20110919, end: 20111013
  2. ABILITY (ARIPIPRAZOLE) [Concomitant]
  3. IMODIUM ADVANCED (LOPERAMIDE, SIMETICONE) [Concomitant]
  4. LEVOTHROID [Concomitant]
  5. PROCHLORPERAZINE (PROCHLORPERAZINE MALEATE) [Concomitant]
  6. BENADRYL [Concomitant]
  7. FLUCONAZOLE [Concomitant]

REACTIONS (3)
  - SCAB [None]
  - PROGRESSIVE MULTIFOCAL LEUKOENCEPHALOPATHY [None]
  - DYSPNOEA EXERTIONAL [None]
